FAERS Safety Report 4714210-7 (Version None)
Quarter: 2005Q3

REPORT INFORMATION
  Report Type: 
  Country: None (occurrence: None)
  Receive Date: 20050714
  Receipt Date: 20050711
  Transmission Date: 20060218
  Serious: Yes (Life-Threatening, Hospitalization)
  Sender: FDA-Public Use
  Company Number: 2005UW10272

PATIENT
  Age: 68 Year
  Sex: Female

DRUGS (2)
  1. IRESSA [Suspect]
     Indication: SQUAMOUS CELL CARCINOMA
     Route: 048
     Dates: start: 20050509, end: 20050616
  2. PROZAC [Suspect]
     Indication: DEPRESSION
     Route: 048

REACTIONS (1)
  - PNEUMONIA ASPIRATION [None]
